FAERS Safety Report 9553353 (Version 1)
Quarter: 2013Q3

REPORT INFORMATION
  Report Type: Spontaneous
  Country: US (occurrence: None)
  Receive Date: 20130913
  Receipt Date: 20130913
  Transmission Date: 20140515
  Serious: Yes (Death)
  Sender: FDA-Public Use
  Company Number: 1000042218

PATIENT
  Age: 40 Year
  Sex: Male

DRUGS (2)
  1. CELEXA (CITALOPRAM HYDROBROMIDE) [Suspect]
  2. DILAUDID (HYDROMORPHONE HYDROCHLORIDE) [Suspect]

REACTIONS (1)
  - Accidental overdose [None]
